FAERS Safety Report 8834132 (Version 2)
Quarter: 2012Q4

REPORT INFORMATION
  Report Type: 
  Country: US (occurrence: US)
  Receive Date: 20121010
  Receipt Date: 20121214
  Transmission Date: 20130627
  Serious: Yes (Other)
  Sender: FDA-Public Use
  Company Number: US-NAPPMUNDI-USA-2012-0094049

PATIENT
  Age: 60 None
  Sex: Male

DRUGS (6)
  1. OXYCONTIN (NDA 22-272) [Suspect]
     Indication: LUMBAR RADICULOPATHY
     Dosage: 20 mg, bid
     Route: 048
  2. OXYCONTIN (NDA 22-272) [Suspect]
     Dosage: 30 mg, tid
     Route: 048
     Dates: start: 201204
  3. OXYCODONE HCL IMMEDIATE RELEASE (91-490) [Suspect]
     Indication: BREAKTHROUGH PAIN
     Route: 048
  4. ROXICODONE [Concomitant]
     Indication: BREAKTHROUGH PAIN
     Dosage: 30 mg, qid
     Route: 048
     Dates: start: 201204
  5. CYMBALTA [Concomitant]
     Indication: PRODUCT USED FOR UNKNOWN INDICATION
     Dosage: 60 mg, daily
     Route: 048
  6. LYRICA [Concomitant]
     Indication: PRODUCT USED FOR UNKNOWN INDICATION
     Dosage: 100 mg, bid
     Route: 048

REACTIONS (2)
  - Spinal fusion surgery [Unknown]
  - Medical device change [Unknown]
